FAERS Safety Report 23442779 (Version 2)
Quarter: 2024Q1

REPORT INFORMATION
  Report Type: Spontaneous
  Country: US (occurrence: US)
  Receive Date: 20240125
  Receipt Date: 20240214
  Transmission Date: 20240410
  Serious: Yes (Life-Threatening, Other)
  Sender: FDA-Public Use
  Company Number: US-HIKMA PHARMACEUTICALS USA INC.-US-H14001-24-00444

PATIENT
  Age: 18 Year
  Sex: Female
  Weight: 67 kg

DRUGS (10)
  1. CYTARABINE [Suspect]
     Active Substance: CYTARABINE
     Indication: B-cell type acute leukaemia
     Dosage: 70 MILLIGRAM/SQ. METER
     Route: 065
     Dates: start: 20221007, end: 20231224
  2. MERCAPTOPURINE [Suspect]
     Active Substance: MERCAPTOPURINE
     Indication: B-cell type acute leukaemia
     Dosage: 75 MG 5 DAYS A WEEK, 50 MG 2 DAYS A WEEK
     Route: 065
     Dates: start: 20221116, end: 20231224
  3. METHOTREXATE [Suspect]
     Active Substance: METHOTREXATE
     Indication: B-cell type acute leukaemia
     Dosage: 17.5 MILLIGRAM, WEEKLY
     Route: 048
     Dates: start: 20221017, end: 20231224
  4. PREDNISONE [Suspect]
     Active Substance: PREDNISONE
     Indication: B-cell type acute leukaemia
     Dosage: 20 MILLIGRAM/SQ. METER, BID
     Route: 048
     Dates: start: 20221011
  5. RUXOLITINIB [Suspect]
     Active Substance: RUXOLITINIB
     Indication: B-cell type acute leukaemia
     Dosage: 90 MILLIGRAM, BID
     Route: 048
     Dates: start: 20221115, end: 20231224
  6. RUXOLITINIB [Suspect]
     Active Substance: RUXOLITINIB
     Dosage: UNK
     Route: 065
     Dates: start: 20231224
  7. VINCRISTINE [Suspect]
     Active Substance: VINCRISTINE
     Indication: B-cell type acute leukaemia
     Dosage: 2 MILLIGRAM
     Route: 065
     Dates: start: 20221007
  8. MEDROXYPROGESTERONE ACETATE [Concomitant]
     Active Substance: MEDROXYPROGESTERONE ACETATE
     Indication: Product used for unknown indication
     Dosage: UNK
     Route: 065
  9. PENTAMIDINE [Concomitant]
     Active Substance: PENTAMIDINE
     Indication: Product used for unknown indication
     Dosage: UNK
     Route: 065
  10. PHYTONADIONE [Concomitant]
     Active Substance: PHYTONADIONE
     Indication: Product used for unknown indication
     Dosage: UNKNOWN
     Route: 065

REACTIONS (28)
  - Acute respiratory failure [Unknown]
  - Sepsis [Unknown]
  - Platelet count decreased [Unknown]
  - White blood cell count decreased [Unknown]
  - Asthenia [Unknown]
  - Hypophagia [Unknown]
  - Pyrexia [Unknown]
  - Cough [Unknown]
  - Respiratory rate decreased [Unknown]
  - Flank pain [Unknown]
  - Blood creatinine increased [Unknown]
  - Hypokalaemia [Unknown]
  - Hyponatraemia [Unknown]
  - Haemoglobin decreased [Unknown]
  - Neutrophil count decreased [Unknown]
  - Prothrombin time prolonged [Unknown]
  - Metabolic acidosis [Unknown]
  - Hypoxia [Unknown]
  - Tachycardia [Unknown]
  - Hypotension [Unknown]
  - Condition aggravated [Unknown]
  - Respiratory distress [Unknown]
  - Pneumothorax [Unknown]
  - Breath sounds absent [Unknown]
  - Thrombosis [Recovered/Resolved]
  - Pancytopenia [Unknown]
  - Septic shock [Unknown]
  - Staphylococcal bacteraemia [Unknown]

NARRATIVE: CASE EVENT DATE: 20231221
